FAERS Safety Report 16156927 (Version 1)
Quarter: 2019Q2

REPORT INFORMATION
  Report Type: Spontaneous
  Country: US (occurrence: US)
  Receive Date: 20190403
  Receipt Date: 20190403
  Transmission Date: 20190711
  Serious: No
  Sender: FDA-Public Use
  Company Number: None

PATIENT
  Age: 29 Year
  Sex: Female
  Weight: 78.75 kg

DRUGS (2)
  1. PAROXETINE. [Suspect]
     Active Substance: PAROXETINE
     Indication: DEPRESSION
     Dosage: ?          QUANTITY:1 TABLET(S);?
     Route: 048
  2. TOPICAL BENZOYL PEROXIDE/CLINDAMYCIN [Concomitant]

REACTIONS (3)
  - Withdrawal syndrome [None]
  - Paraesthesia [None]
  - Impaired driving ability [None]

NARRATIVE: CASE EVENT DATE: 20190401
